FAERS Safety Report 23436676 (Version 1)
Quarter: 2024Q1

REPORT INFORMATION
  Report Type: Spontaneous
  Country: PT (occurrence: PT)
  Receive Date: 20240124
  Receipt Date: 20240124
  Transmission Date: 20240409
  Serious: Yes (Hospitalization, Other)
  Sender: FDA-Public Use
  Company Number: PT-AstraZeneca-2024-121517

PATIENT
  Age: 88 Day

DRUGS (1)
  1. SYNAGIS [Suspect]
     Active Substance: PALIVIZUMAB
     Indication: Bronchopulmonary dysplasia
     Dosage: EVERY FOUR WEEKS
     Route: 030
     Dates: start: 20231024

REACTIONS (3)
  - Respiratory syncytial virus bronchiolitis [Recovered/Resolved]
  - Apnoea [Unknown]
  - Feeding disorder [Unknown]

NARRATIVE: CASE EVENT DATE: 20231125
